FAERS Safety Report 5314494-0 (Version None)
Quarter: 2007Q2

REPORT INFORMATION
  Report Type: 
  Country: None (occurrence: None)
  Receive Date: 20070502
  Receipt Date: 20070423
  Transmission Date: 20071010
  Serious: Yes (Disabling, Other)
  Sender: FDA-Public Use
  Company Number: GB-AVENTIS-200713665GDDC

PATIENT
  Age: 17 Year
  Sex: Female
  Weight: 60 kg

DRUGS (4)
  1. METRONIDAZOLE [Suspect]
     Route: 048
     Dates: start: 20070321, end: 20070406
  2. OFLOXACIN [Suspect]
     Route: 048
     Dates: start: 20070321, end: 20070402
  3. IBUPROFEN [Concomitant]
     Dosage: DOSE: UNK
     Route: 048
  4. MICROGYNON                         /00022701/ [Concomitant]
     Indication: CONTRACEPTION
     Dosage: DOSE: 1 DOSAGE FORM
     Route: 048

REACTIONS (4)
  - CLONUS [None]
  - EYE ROLLING [None]
  - PETIT MAL EPILEPSY [None]
  - URINARY INCONTINENCE [None]
